FAERS Safety Report 9305312 (Version 2)
Quarter: 2013Q2

REPORT INFORMATION
  Report Type: Spontaneous
  Country: CO (occurrence: CO)
  Receive Date: 20130523
  Receipt Date: 20130611
  Transmission Date: 20140414
  Serious: Yes (Death)
  Sender: FDA-Public Use
  Company Number: CO-UCBSA-086417

PATIENT
  Age: 85 Year
  Sex: Male

DRUGS (8)
  1. ROTIGOTINE [Suspect]
     Indication: PARKINSON^S DISEASE
     Dosage: 4 MG/24 HOURS
     Route: 062
     Dates: start: 20130128, end: 20130403
  2. ASPIRIN [Concomitant]
  3. LOSARTAN [Concomitant]
  4. ESOMEPRAZOLE [Concomitant]
  5. IPRATROPIUM BROMIDE [Concomitant]
     Dosage: 2 PUFF TID
  6. ACETAMINOPHEN [Concomitant]
  7. ENTACAPONE/LEVEDOPE/CARBIDOPE [Concomitant]
     Dosage: 200 MG + 100 MG + 25 MG EVERY 6 HOURS
  8. TRAZODONE [Concomitant]

REACTIONS (1)
  - Acute myocardial infarction [Fatal]
